FAERS Safety Report 7738781-1 (Version None)
Quarter: 2011Q3

REPORT INFORMATION
  Report Type: 
  Country: None (occurrence: None)
  Receive Date: 20110908
  Receipt Date: 20110826
  Transmission Date: 20111222
  Serious: Yes (Other)
  Sender: FDA-Public Use
  Company Number: DE-MYLANLABS-2011S1017760

PATIENT
  Sex: Female
  Weight: 82 kg

DRUGS (1)
  1. PRAVASTATIN [Suspect]
     Indication: HYPERCHOLESTEROLAEMIA
     Route: 048
     Dates: start: 20100901

REACTIONS (4)
  - DYSPHONIA [None]
  - ASTHMA [None]
  - MYALGIA [None]
  - PRURITUS [None]
